FAERS Safety Report 4861876-7 (Version None)
Quarter: 2005Q4

REPORT INFORMATION
  Report Type: 
  Country: None (occurrence: None)
  Receive Date: 20051130
  Receipt Date: 20050613
  Transmission Date: 20060501
  Serious: Yes (Other)
  Sender: FDA-Public Use
  Company Number: 200511177BWH

PATIENT
  Age: 34 Year
  Sex: Male
  Weight: 79.3795 kg

DRUGS (2)
  1. CIPROFLOXACIN [Suspect]
     Indication: EPIDIDYMITIS
     Dosage: QD, ORAL
     Route: 048
     Dates: start: 20050505, end: 20050508
  2. CEFUROXIME [Concomitant]

REACTIONS (9)
  - ARTHRALGIA [None]
  - BURNING SENSATION [None]
  - FLANK PAIN [None]
  - HEART RATE INCREASED [None]
  - JOINT SWELLING [None]
  - MUSCLE SPASMS [None]
  - PARAESTHESIA [None]
  - TENDON DISORDER [None]
  - TENDON RUPTURE [None]
